FAERS Safety Report 5558731-6 (Version None)
Quarter: 2007Q4

REPORT INFORMATION
  Report Type: 
  Country: None (occurrence: None)
  Receive Date: 20071214
  Receipt Date: 20070907
  Transmission Date: 20080405
  Serious: No
  Sender: FDA-Public Use
  Company Number: US-ABBOTT-07P-163-0416485-00

PATIENT
  Sex: Female
  Weight: 56.75 kg

DRUGS (6)
  1. HUMIRA [Suspect]
     Indication: RHEUMATOID ARTHRITIS
     Route: 058
     Dates: start: 20070904
  2. COZAAR [Concomitant]
     Indication: BLOOD PRESSURE
  3. PANTOPRAZOLE SODIUM [Concomitant]
     Indication: DRUG USE FOR UNKNOWN INDICATION
  4. ATENOLOL [Concomitant]
     Indication: BLOOD PRESSURE
  5. SPIRONOLACTONE [Concomitant]
     Indication: BLOOD PRESSURE
  6. QUINIDINE HCL [Concomitant]
     Indication: BLOOD PRESSURE

REACTIONS (2)
  - BACK PAIN [None]
  - UPPER RESPIRATORY TRACT INFECTION [None]
